FAERS Safety Report 8447011-7 (Version None)
Quarter: 2012Q2

REPORT INFORMATION
  Report Type: 
  Country: None (occurrence: None)
  Receive Date: 20120619
  Receipt Date: 20120613
  Transmission Date: 20120825
  Serious: Yes (Hospitalization, Other)
  Sender: FDA-Public Use
  Company Number: JP-ABBOTT-11P-087-0708152-00

PATIENT
  Sex: Male
  Weight: 61.2 kg

DRUGS (11)
  1. TPN [Concomitant]
     Indication: CROHN'S DISEASE
     Route: 048
     Dates: start: 20110512
  2. MESALAMINE [Concomitant]
     Indication: CROHN'S DISEASE
     Dosage: 3000MG DAILY
     Route: 048
  3. ALBUMIN TANNATE [Concomitant]
     Indication: PROPHYLAXIS AGAINST DIARRHOEA
     Route: 048
  4. HUMIRA [Suspect]
     Dates: start: 20110524, end: 20110605
  5. HUMIRA [Suspect]
     Indication: CROHN'S DISEASE
     Dates: start: 20110228, end: 20110228
  6. ALBUMIN TANNATE [Concomitant]
     Indication: SUPPORTIVE CARE
  7. HUMIRA [Suspect]
     Dates: start: 20110314, end: 20110314
  8. HUMIRA [Suspect]
     Dates: start: 20110328, end: 20110424
  9. HUMIRA [Suspect]
     Dates: start: 20110620, end: 20110703
  10. CLOSTRIDIUM BUTYRICUM [Concomitant]
     Indication: CROHN'S DISEASE
     Route: 048
  11. DIMETICONE [Concomitant]
     Indication: SUPPORTIVE CARE
     Route: 048

REACTIONS (1)
  - ADMINISTRATION RELATED REACTION [None]
